FAERS Safety Report 16541965 (Version 1)
Quarter: 2019Q3

REPORT INFORMATION
  Report Type: Spontaneous
  Country: US (occurrence: US)
  Receive Date: 20190524
  Receipt Date: 20190524
  Transmission Date: 20191004
  Serious: Yes (Other)
  Sender: FDA-Public Use
  Company Number: None

PATIENT
  Age: 72 Year
  Sex: Male

DRUGS (1)
  1. INLYTA [Suspect]
     Active Substance: AXITINIB
     Route: 048
     Dates: start: 201805, end: 201905

REACTIONS (3)
  - Fatigue [None]
  - Glossodynia [None]
  - Dry mouth [None]

NARRATIVE: CASE EVENT DATE: 20190524
